FAERS Safety Report 18059583 (Version 1)
Quarter: 2020Q3

REPORT INFORMATION
  Report Type: Spontaneous
  Country: GB (occurrence: GB)
  Receive Date: 20200723
  Receipt Date: 20200723
  Transmission Date: 20201103
  Serious: Yes (Life-Threatening, Other)
  Sender: FDA-Public Use
  Company Number: GB-PFIZER INC-2020277974

PATIENT
  Sex: Male

DRUGS (9)
  1. BOSUTINIB [Suspect]
     Active Substance: BOSUTINIB
     Dosage: 200 MG, 1X/DAY
     Route: 065
  2. PONATINIB [Suspect]
     Active Substance: PONATINIB
     Indication: CHRONIC MYELOID LEUKAEMIA
     Dosage: 30 MG, 1X/DAY
     Route: 065
     Dates: end: 202006
  3. DASATINIB. [Suspect]
     Active Substance: DASATINIB
     Indication: CHRONIC MYELOID LEUKAEMIA
     Dosage: UNK
     Route: 065
     Dates: start: 20180115, end: 20180215
  4. BOSUTINIB [Suspect]
     Active Substance: BOSUTINIB
     Indication: CHRONIC MYELOID LEUKAEMIA
     Dosage: UNK
     Route: 065
     Dates: start: 20191213
  5. ASCIMINIB [Suspect]
     Active Substance: ASCIMINIB
     Indication: CHRONIC MYELOID LEUKAEMIA
     Dosage: 40 MG, 2X/DAY
     Route: 065
     Dates: start: 20180830, end: 20181106
  6. NILOTINIB [Suspect]
     Active Substance: NILOTINIB
     Indication: CHRONIC MYELOID LEUKAEMIA
     Dosage: 300 MG, 2X/DAY
     Route: 065
     Dates: start: 20180314, end: 20180705
  7. IMATINIB. [Suspect]
     Active Substance: IMATINIB MESYLATE
     Indication: CHRONIC MYELOID LEUKAEMIA
     Dosage: UNK
     Route: 065
     Dates: start: 20171107, end: 20180123
  8. PONATINIB [Suspect]
     Active Substance: PONATINIB
     Dosage: UNK
     Route: 065
     Dates: start: 20190729, end: 20200702
  9. BOSUTINIB [Suspect]
     Active Substance: BOSUTINIB
     Dosage: 400 MG, 1X/DAY
     Route: 065
     Dates: start: 201903

REACTIONS (6)
  - Hepatotoxicity [Unknown]
  - Thrombocytopenia [Unknown]
  - Drug intolerance [Unknown]
  - Cytopenia [Unknown]
  - Bone marrow failure [Unknown]
  - Treatment failure [Unknown]
